FAERS Safety Report 5410955-4 (Version None)
Quarter: 2007Q3

REPORT INFORMATION
  Report Type: 
  Country: None (occurrence: None)
  Receive Date: 20070809
  Receipt Date: 20070809
  Transmission Date: 20080115
  Serious: Yes (Hospitalization)
  Sender: FDA-Public Use
  Company Number: None

PATIENT
  Age: 65 Year
  Sex: Male

DRUGS (7)
  1. VELCADE [Suspect]
     Indication: LYMPHOMA
     Dosage: 1.6 MG/M2 WEEKLY DAYS 1,8,15,22 IV
     Route: 042
     Dates: start: 20070102, end: 20070509
  2. CYCLOPHOSPHAMIDE [Suspect]
     Dosage: 400MG/M2 DAYS 1-4 PO
     Route: 048
     Dates: start: 20070102, end: 20070510
  3. RITUXUMAB [Suspect]
     Dosage: 375 MG/M2 DAYS 1,8,15,22 IN CYCLE 3 IV
     Route: 042
     Dates: start: 20070102, end: 20070510
  4. DEXAMETHASONE 0.5MG TAB [Suspect]
     Dosage: 40 MG DAYS 1,2,3,8,15,16,22,23 PO
     Route: 048
     Dates: start: 20070102, end: 20070510
  5. LIPITOR [Concomitant]
  6. MICRONASE [Concomitant]
  7. ACTOS [Concomitant]

REACTIONS (5)
  - BALANCE DISORDER [None]
  - CEREBROVASCULAR ACCIDENT [None]
  - CONFUSIONAL STATE [None]
  - DYSARTHRIA [None]
  - GAIT DISTURBANCE [None]
